FAERS Safety Report 8124633-4 (Version None)
Quarter: 2012Q1

REPORT INFORMATION
  Report Type: 
  Country: None (occurrence: None)
  Receive Date: 20120209
  Receipt Date: 20120209
  Transmission Date: 20120608
  Serious: Yes (Hospitalization)
  Sender: FDA-Public Use
  Company Number: None

PATIENT
  Sex: Female
  Weight: 71 kg

DRUGS (1)
  1. TRIMETHOPRIM + SULFAMETHOXAZOLE [Suspect]
     Indication: ACNE
     Dates: start: 20120124, end: 20120131

REACTIONS (12)
  - DIZZINESS [None]
  - MALAISE [None]
  - PYREXIA [None]
  - RASH [None]
  - BLOOD CREATININE INCREASED [None]
  - TACHYCARDIA [None]
  - NAUSEA [None]
  - HAEMATOCRIT DECREASED [None]
  - PLATELET COUNT DECREASED [None]
  - FATIGUE [None]
  - HAEMOGLOBIN DECREASED [None]
  - STEVENS-JOHNSON SYNDROME [None]
